FAERS Safety Report 9285446 (Version 1)
Quarter: 2013Q2

REPORT INFORMATION
  Report Type: Spontaneous
  Country: IT (occurrence: None)
  Receive Date: 20130506
  Receipt Date: 20130506
  Transmission Date: 20140414
  Serious: Yes (Other)
  Sender: FDA-Public Use
  Company Number: 1689885

PATIENT
  Age: 52 Year
  Sex: Female

DRUGS (2)
  1. OXALIPLATIN [Suspect]
     Indication: RECTAL CANCER
     Dosage: CYCLICAL
     Route: 042
     Dates: start: 20130419, end: 20130419
  2. ALOXI [Concomitant]

REACTIONS (3)
  - Presyncope [None]
  - Erythema [None]
  - Abdominal pain [None]
